FAERS Safety Report 6450785-8 (Version None)
Quarter: 2009Q4

REPORT INFORMATION
  Report Type: 
  Country: None (occurrence: None)
  Receive Date: 20091120
  Receipt Date: 20091120
  Transmission Date: 20100525
  Serious: Yes (Other)
  Sender: FDA-Public Use
  Company Number: None

PATIENT
  Age: 69 Year
  Sex: Male
  Weight: 72.57 kg

DRUGS (1)
  1. ETRAVIRINE [Suspect]
     Indication: HIV INFECTION
     Dosage: 200 MG BID PO
     Route: 048
     Dates: start: 20081209, end: 20081229

REACTIONS (1)
  - URTICARIA [None]
